FAERS Safety Report 5524913-2 (Version None)
Quarter: 2007Q4

REPORT INFORMATION
  Report Type: 
  Country: None (occurrence: None)
  Receive Date: 20071119
  Receipt Date: 20071108
  Transmission Date: 20080405
  Serious: Yes (Life-Threatening)
  Sender: FDA-Public Use
  Company Number: A-US2007-17960

PATIENT
  Age: 65 Year
  Sex: Male

DRUGS (1)
  1. TRACLEER(BOSENTAN TABLET UNKNOWN US MG)(BOSENTAN) TABLET [Suspect]
     Indication: PULMONARY HYPERTENSION
     Dosage: ORAL
     Route: 048
     Dates: start: 20060310

REACTIONS (3)
  - ACUTE LEUKAEMIA [None]
  - ANAEMIA [None]
  - THROMBOCYTOPENIA [None]
